FAERS Safety Report 12868647 (Version 1)
Quarter: 2016Q4

REPORT INFORMATION
  Report Type: Other
  Country: IR (occurrence: IR)
  Receive Date: 20161021
  Receipt Date: 20161021
  Transmission Date: 20170207
  Serious: Yes (Hospitalization)
  Sender: FDA-Public Use
  Company Number: IR-NOVEL LABORATORIES, INC-2016-04716

PATIENT
  Age: 2 Year
  Sex: Male

DRUGS (1)
  1. CLOBETASOL [Suspect]
     Active Substance: CLOBETASOL
     Indication: DERMATITIS DIAPER
     Route: 061

REACTIONS (4)
  - Cushing^s syndrome [Unknown]
  - Blindness [Not Recovered/Not Resolved]
  - Acute kidney injury [Recovering/Resolving]
  - Hypertensive encephalopathy [Recovering/Resolving]
